FAERS Safety Report 24078605 (Version 1)
Quarter: 2024Q3

REPORT INFORMATION
  Report Type: Spontaneous
  Country: US (occurrence: US)
  Receive Date: 20240711
  Receipt Date: 20240711
  Transmission Date: 20241017
  Serious: Yes (Life-Threatening, Hospitalization, Other)
  Sender: HIKMA
  Company Number: US-MLMSERVICE-20240620-PI107421-00034-1

PATIENT
  Age: 3 Decade
  Sex: Female

DRUGS (2)
  1. AMIODARONE [Suspect]
     Active Substance: AMIODARONE
     Dosage: UNKNOWN
  2. AMIODARONE [Suspect]
     Active Substance: AMIODARONE
     Indication: Product used for unknown indication
     Dosage: TAPER
     Route: 065

REACTIONS (3)
  - Dilated cardiomyopathy [Recovered/Resolved]
  - Hyperthyroidism [Unknown]
  - Ventricular extrasystoles [Recovered/Resolved]
